FAERS Safety Report 21571207 (Version 1)
Quarter: 2022Q4

REPORT INFORMATION
  Report Type: Spontaneous
  Country: CH (occurrence: CH)
  Receive Date: 20221109
  Receipt Date: 20221109
  Transmission Date: 20230112
  Serious: Yes (Hospitalization, Other)
  Sender: FDA-Public Use
  Company Number: CH-MLMSERVICE-20221101-3840426-1

PATIENT
  Age: 73 Year
  Sex: Male

DRUGS (6)
  1. ACETAMINOPHEN [Interacting]
     Active Substance: ACETAMINOPHEN
     Indication: Analgesic therapy
     Route: 048
  2. FLUCLOXACILLIN [Interacting]
     Active Substance: FLUCLOXACILLIN
     Indication: Endocarditis staphylococcal
     Dosage: HIGH DOSE
  3. CIPROFLOXACIN [Concomitant]
     Active Substance: CIPROFLOXACIN
     Indication: Device related infection
     Route: 065
  4. CIPROFLOXACIN [Concomitant]
     Active Substance: CIPROFLOXACIN
     Indication: Internal fixation of fracture
  5. RIFAMPIN [Concomitant]
     Active Substance: RIFAMPIN
     Indication: Device related infection
     Route: 065
  6. RIFAMPIN [Concomitant]
     Active Substance: RIFAMPIN
     Indication: Internal fixation of fracture

REACTIONS (3)
  - Encephalopathy [Recovered/Resolved]
  - Pyroglutamic acidosis [Recovered/Resolved]
  - Drug interaction [Recovered/Resolved]
